FAERS Safety Report 9177683 (Version 2)
Quarter: 2013Q4

REPORT INFORMATION
  Report Type: Spontaneous
  Country: US (occurrence: US)
  Receive Date: 20130321
  Receipt Date: 20131227
  Transmission Date: 20140711
  Serious: Yes (Other)
  Sender: FDA-Public Use
  Company Number: US-BAYER-2013-034221

PATIENT
  Age: 25 Year
  Sex: Female

DRUGS (8)
  1. YAZ [Suspect]
  2. YASMIN [Suspect]
     Indication: CONTRACEPTION
  3. OCELLA [Suspect]
  4. LEVOTHYROXINE [Concomitant]
     Indication: HYPOTHYROIDISM
     Dosage: 0.05 MG, UNK
     Route: 048
  5. CELEXA [Concomitant]
     Indication: DEPRESSION
     Dosage: 20 MG, UNK
     Route: 048
  6. ACETAMINOPHEN [Concomitant]
     Dosage: 1000 MG, UNK
     Route: 048
     Dates: start: 20080118
  7. DONNATAL [Concomitant]
     Dosage: 10 ML, UNK
     Route: 048
     Dates: start: 20080118
  8. SYNTHROID [Concomitant]
     Dosage: 0.075 MG, UNK
     Route: 048
     Dates: start: 20080210

REACTIONS (4)
  - Cholecystectomy [None]
  - Injury [None]
  - Emotional distress [None]
  - Cholelithiasis [None]
